FAERS Safety Report 4676025-8 (Version None)
Quarter: 2005Q2

REPORT INFORMATION
  Report Type: 
  Country: None (occurrence: None)
  Receive Date: 20050527
  Receipt Date: 20050314
  Transmission Date: 20051028
  Serious: No
  Sender: FDA-Public Use
  Company Number: US-GLAXOSMITHKLINE-A0550092A

PATIENT
  Sex: Female

DRUGS (4)
  1. WELLBUTRIN XL [Suspect]
     Indication: DRUG USE FOR UNKNOWN INDICATION
     Dosage: 300MG PER DAY
     Route: 048
  2. WELLBUTRIN SR [Concomitant]
     Dosage: 150MG TWICE PER DAY
     Route: 048
  3. CELEXA [Concomitant]
  4. ADDERALL 10 [Concomitant]

REACTIONS (2)
  - DEPRESSION [None]
  - LETHARGY [None]
